FAERS Safety Report 6046736-0 (Version None)
Quarter: 2009Q1

REPORT INFORMATION
  Report Type: 
  Country: None (occurrence: None)
  Receive Date: 20090122
  Receipt Date: 20090113
  Transmission Date: 20090719
  Serious: Yes (Hospitalization)
  Sender: FDA-Public Use
  Company Number: JP-PFIZER INC-2008156377

PATIENT

DRUGS (7)
  1. SOMATROPIN [Suspect]
     Indication: HYPOPITUITARISM
     Dosage: 0.8 MG, 1X/DAY
     Route: 058
     Dates: start: 20030806
  2. SOMATROPIN [Suspect]
     Dosage: 4.8 MG, 6 TIMES/WEEK
     Dates: start: 20041115
  3. SOMATROPIN [Suspect]
     Dosage: 5.6 MG, 7 TIMES/WEEK
     Dates: start: 20051212
  4. SOMATROPIN [Suspect]
     Dosage: 7.0 MG, 1X/DAY
     Dates: start: 20071129
  5. HYDROCORTISONE [Concomitant]
     Indication: SECONDARY ADRENOCORTICAL INSUFFICIENCY
     Dosage: 15 MG, 1X/DAY
     Route: 048
     Dates: start: 20070906
  6. THYRADIN S [Concomitant]
     Indication: SECONDARY HYPOTHYROIDISM
     Dosage: 100 UG, 1X/DAY
     Route: 048
     Dates: start: 20041213
  7. THYRADIN S [Concomitant]
     Dosage: 125 UG, 1X/DAY
     Dates: start: 20070906

REACTIONS (2)
  - CONDITION AGGRAVATED [None]
  - CRANIOPHARYNGIOMA [None]
